FAERS Safety Report 8001982-1 (Version None)
Quarter: 2011Q4

REPORT INFORMATION
  Report Type: 
  Country: None (occurrence: None)
  Receive Date: 20111220
  Receipt Date: 20111130
  Transmission Date: 20120403
  Serious: Yes (Death)
  Sender: FDA-Public Use
  Company Number: JPI-P-015064

PATIENT
  Age: 56 Year
  Sex: Male

DRUGS (5)
  1. MORPHINE [Suspect]
     Indication: METASTATIC PAIN
     Dosage: (30 MG, AS REQUIRED), ORAL
     Route: 048
  2. MORPHINE [Suspect]
     Indication: RESPIRATORY DISTRESS
     Dosage: (30 MG, AS REQUIRED), ORAL
     Route: 048
  3. XYREM [Suspect]
     Indication: NARCOLEPSY
     Dosage: 3.5 GM (1.75 GM, 2 IN 1 D), ORAL (UNKNOWN DOSE CHANGE), ORAL 8 GM (4 GM, 2 IN 1 D), ORAL 5 GM (5 GM,
     Route: 048
     Dates: start: 20040726
  4. XYREM [Suspect]
     Indication: NARCOLEPSY
     Dosage: 3.5 GM (1.75 GM, 2 IN 1 D), ORAL (UNKNOWN DOSE CHANGE), ORAL 8 GM (4 GM, 2 IN 1 D), ORAL 5 GM (5 GM,
     Route: 048
     Dates: start: 20021115
  5. XYREM [Suspect]
     Indication: NARCOLEPSY
     Dosage: 3.5 GM (1.75 GM, 2 IN 1 D), ORAL (UNKNOWN DOSE CHANGE), ORAL 8 GM (4 GM, 2 IN 1 D), ORAL 5 GM (5 GM,
     Route: 048
     Dates: start: 20031215

REACTIONS (6)
  - WEIGHT DECREASED [None]
  - SEDATION [None]
  - DYSPNOEA [None]
  - PLEURAL EFFUSION [None]
  - RESPIRATORY FAILURE [None]
  - LUNG CANCER METASTATIC [None]
